FAERS Safety Report 12949277 (Version 2)
Quarter: 2016Q4

REPORT INFORMATION
  Report Type: Spontaneous
  Country: US (occurrence: US)
  Receive Date: 20161117
  Receipt Date: 20161222
  Transmission Date: 20170207
  Serious: No
  Sender: FDA-Public Use
  Company Number: US-PFIZER INC-2016532878

PATIENT

DRUGS (2)
  1. XANAX [Suspect]
     Active Substance: ALPRAZOLAM
     Indication: INSOMNIA
     Dosage: UNK, AT NIGHT
  2. ROBITUSSIN 12 HOUR COUGH RELIEF [Interacting]
     Active Substance: DEXTROMETHORPHAN HYDROBROMIDE
     Indication: HYPERSENSITIVITY
     Dosage: 10 DF, UNK (^10 OUNCES^)

REACTIONS (4)
  - Insomnia [Unknown]
  - Drug interaction [Unknown]
  - Incorrect dose administered [None]
  - Off label use [None]
